FAERS Safety Report 13039410 (Version 1)
Quarter: 2016Q4

REPORT INFORMATION
  Report Type: Spontaneous
  Country: IT (occurrence: IT)
  Receive Date: 20161219
  Receipt Date: 20161219
  Transmission Date: 20170207
  Serious: Yes (Other)
  Sender: FDA-Public Use
  Company Number: IT-CELLTRION INC.-2015IT012579

PATIENT

DRUGS (10)
  1. REUMAFLEX /00113802/ [Concomitant]
     Active Substance: METHOTREXATE SODIUM
     Dosage: UNK
  2. REUMAFLEX /00113802/ [Concomitant]
     Active Substance: METHOTREXATE SODIUM
     Dosage: UNK
  3. DROPAXIN [Concomitant]
     Dosage: UNK
  4. LOBIVON [Concomitant]
     Active Substance: NEBIVOLOL HYDROCHLORIDE
     Dosage: UNK
  5. DROPAXIN [Concomitant]
     Dosage: UNK
  6. REUMAFLEX /00113802/ [Concomitant]
     Active Substance: METHOTREXATE SODIUM
     Dosage: UNK
  7. LOBIVON [Concomitant]
     Active Substance: NEBIVOLOL HYDROCHLORIDE
     Dosage: UNK
  8. INFLECTRA [Suspect]
     Active Substance: INFLIXIMAB-DYYB
     Indication: SPONDYLITIS
     Dosage: 5 UG/KG, CYCLIC
     Route: 042
     Dates: start: 20150902, end: 20151104
  9. DROPAXIN [Concomitant]
     Dosage: UNK
  10. LOBIVON [Concomitant]
     Active Substance: NEBIVOLOL HYDROCHLORIDE
     Dosage: UNK

REACTIONS (3)
  - Uveitis [Not Recovered/Not Resolved]
  - Episcleritis [Not Recovered/Not Resolved]
  - Drug ineffective [Unknown]

NARRATIVE: CASE EVENT DATE: 20151104
